FAERS Safety Report 4699895-6 (Version None)
Quarter: 2005Q2

REPORT INFORMATION
  Report Type: 
  Country: None (occurrence: None)
  Receive Date: 20050624
  Receipt Date: 20050620
  Transmission Date: 20051028
  Serious: Yes (Hospitalization)
  Sender: FDA-Public Use
  Company Number: C05-T-104

PATIENT
  Age: 72 Year
  Sex: Female

DRUGS (8)
  1. ATENOLOL [Suspect]
     Indication: HYPERTENSION
     Dosage: 25 MG QD PO
     Route: 048
     Dates: start: 20040601
  2. ATENOLOL [Suspect]
     Indication: HYPERTENSION
     Dosage: SEE IMAGE
     Route: 048
     Dates: end: 20050313
  3. ATENOLOL [Suspect]
     Indication: HYPERTENSION
     Dosage: SEE IMAGE
     Route: 048
     Dates: start: 20050316, end: 20050601
  4. ATENOLOL [Suspect]
     Indication: HYPERTENSION
     Dosage: SEE IMAGE
     Route: 048
     Dates: start: 20050315
  5. QUINAPRIL [Suspect]
     Indication: HYPERTENSION
     Dates: start: 20050401
  6. SYNTHROID [Concomitant]
  7. NEXIUM [Concomitant]
  8. HYDROCHLOROTHIAZIDE 25MG TAB [Concomitant]

REACTIONS (10)
  - ABDOMINAL PAIN [None]
  - CONDITION AGGRAVATED [None]
  - COUGH [None]
  - DRUG DOSE OMISSION [None]
  - DYSPNOEA [None]
  - HYPERTENSION [None]
  - NAUSEA [None]
  - SINUS TACHYCARDIA [None]
  - TREATMENT NONCOMPLIANCE [None]
  - WHEEZING [None]
